FAERS Safety Report 17744912 (Version 1)
Quarter: 2020Q2

REPORT INFORMATION
  Report Type: Spontaneous
  Country: US (occurrence: US)
  Receive Date: 20200505
  Receipt Date: 20200505
  Transmission Date: 20200714
  Serious: No
  Sender: FDA-Public Use
  Company Number: US-TAKEDA-2020TUS020722

PATIENT
  Age: 38 Year
  Sex: Male

DRUGS (5)
  1. XELJANZ [Concomitant]
     Active Substance: TOFACITINIB CITRATE
     Dosage: 10 MILLIGRAM
  2. ENTYVIO [Suspect]
     Active Substance: VEDOLIZUMAB
     Indication: COLITIS ULCERATIVE
     Dosage: UNK
     Route: 065
  3. ENTYVIO [Suspect]
     Active Substance: VEDOLIZUMAB
     Indication: COLITIS
     Dosage: UNK UNK, Q4WEEKS
     Route: 065
  4. AZATHIOPRINE. [Concomitant]
     Active Substance: AZATHIOPRINE
     Dosage: UNK
  5. MEZAVANT [Concomitant]
     Active Substance: MESALAMINE
     Dosage: UNK

REACTIONS (3)
  - Off label use [Unknown]
  - No adverse event [Unknown]
  - Treatment failure [Unknown]
